FAERS Safety Report 9774191 (Version 2)
Quarter: 2014Q1

REPORT INFORMATION
  Report Type: Spontaneous
  Country: JP (occurrence: JP)
  Receive Date: 20131220
  Receipt Date: 20140123
  Transmission Date: 20141002
  Serious: Yes (Death, Hospitalization)
  Sender: FDA-Public Use
  Company Number: JP-ROCHE-1319522

PATIENT
  Age: 75 Year
  Sex: Female
  Weight: 48 kg

DRUGS (7)
  1. PEGASYS [Suspect]
     Indication: CHRONIC HEPATITIS C
     Route: 058
     Dates: start: 20101222, end: 20110209
  2. PEGASYS [Suspect]
     Indication: HEPATIC CIRRHOSIS
     Dosage: DOSAGE IS UNCERTAIN
     Route: 058
  3. COPEGUS [Suspect]
     Indication: CHRONIC HEPATITIS C
     Dosage: 100MG IN MORNING AND 200MG IN EVENING
     Route: 048
     Dates: start: 20101222, end: 20110201
  4. COPEGUS [Suspect]
     Indication: HEPATIC CIRRHOSIS
     Route: 048
     Dates: start: 20110202, end: 20110215
  5. COPEGUS [Suspect]
     Indication: HEPATIC CIRRHOSIS
     Dosage: 100MG IN MORNING AND 200MG IN EVENING
     Route: 048
  6. COPEGUS [Suspect]
     Indication: HEPATIC CIRRHOSIS
  7. ALFAROL [Concomitant]
     Indication: OSTEOPOROSIS
     Route: 048
     Dates: start: 20101222, end: 20110215

REACTIONS (3)
  - Hepatic failure [Fatal]
  - Hepatic cancer recurrent [Recovered/Resolved]
  - Haemoglobin decreased [Recovered/Resolved]
